FAERS Safety Report 8496237-5 (Version None)
Quarter: 2012Q3

REPORT INFORMATION
  Report Type: 
  Country: None (occurrence: None)
  Receive Date: 20120709
  Receipt Date: 20120703
  Transmission Date: 20120928
  Serious: Yes (Other)
  Sender: FDA-Public Use
  Company Number: TW-B.I. PHARMACEUTICALS,INC./RIDGEFIELD-2012-RU-00176BP

PATIENT
  Sex: Male

DRUGS (2)
  1. TIOTROPIUM BROMIDE [Suspect]
     Indication: CHRONIC OBSTRUCTIVE PULMONARY DISEASE
     Dosage: 5 MCG
     Route: 055
     Dates: start: 20120307, end: 20120605
  2. TIOTROPIUM BROMIDE [Suspect]
     Dosage: 5 MCG
     Route: 055
     Dates: start: 20120307

REACTIONS (1)
  - CHEST DISCOMFORT [None]
